FAERS Safety Report 10544830 (Version 1)
Quarter: 2014Q4

REPORT INFORMATION
  Report Type: Spontaneous
  Country: US (occurrence: None)
  Receive Date: 20141014
  Receipt Date: 20141014
  Transmission Date: 20150529
  Serious: No
  Sender: FDA-Public Use
  Company Number: PHEH2014US013945

PATIENT
  Age: 39 Year
  Sex: Female

DRUGS (1)
  1. SIGNIFOR [Suspect]
     Active Substance: PASIREOTIDE

REACTIONS (1)
  - Drug ineffective [None]
